FAERS Safety Report 22399679 (Version 1)
Quarter: 2023Q2

REPORT INFORMATION
  Report Type: Spontaneous
  Country: GB (occurrence: None)
  Receive Date: 20230602
  Receipt Date: 20230602
  Transmission Date: 20230722
  Serious: Yes (Other)
  Sender: FDA-Public Use
  Company Number: 2022A221023

PATIENT
  Age: 68 Year
  Sex: Male
  Weight: 74 kg

DRUGS (4)
  1. DAPAGLIFLOZIN [Suspect]
     Active Substance: DAPAGLIFLOZIN
     Dosage: ONE TO BE TAKEN DAILY
     Dates: start: 20220504, end: 20220530
  2. BETAHISTINE [Concomitant]
     Active Substance: BETAHISTINE
     Dosage: ONE TO BE TAKEN THREE TIMES A DAY PRN16.0MG AS REQUIRED
     Dates: start: 20220513
  3. DAPAGLIFLOZIN [Concomitant]
     Active Substance: DAPAGLIFLOZIN
     Dosage: ONE TO BE TAKEN DAILY
     Dates: start: 20220504, end: 20220613
  4. PROCHLORPERAZINE [Concomitant]
     Active Substance: PROCHLORPERAZINE
     Dosage: 1-2 TABLET(S) TWICE A DAY PRN
     Dates: start: 20220513

REACTIONS (5)
  - Vomiting [Unknown]
  - Fatigue [Unknown]
  - Pollakiuria [Unknown]
  - Malaise [Unknown]
  - Insomnia [Unknown]
